FAERS Safety Report 9348442 (Version 1)
Quarter: 2013Q2

REPORT INFORMATION
  Report Type: Spontaneous
  Country: US (occurrence: None)
  Receive Date: 20130613
  Receipt Date: 20130613
  Transmission Date: 20140414
  Serious: Yes (Other)
  Sender: FDA-Public Use
  Company Number: None

PATIENT
  Age: 54 Year
  Sex: Male
  Weight: 79.38 kg

DRUGS (1)
  1. VALACYCLOVIR [Suspect]
     Indication: HERPES SIMPLEX
     Route: 048
     Dates: start: 20130501, end: 20130601

REACTIONS (3)
  - Stress [None]
  - Fatigue [None]
  - Product substitution issue [None]
